FAERS Safety Report 6329261-9 (Version None)
Quarter: 2009Q3

REPORT INFORMATION
  Report Type: 
  Country: None (occurrence: None)
  Receive Date: 20090826
  Receipt Date: 20090813
  Transmission Date: 20100115
  Serious: Yes (Hospitalization, Other)
  Sender: FDA-Public Use
  Company Number: ES-PFIZER INC-2009235751

PATIENT
  Age: 71 Year

DRUGS (13)
  1. ZELDOX [Suspect]
     Dosage: 60 MG, 2X/DAY
     Route: 048
     Dates: start: 20090504, end: 20090507
  2. ADIRO [Concomitant]
     Dosage: 100 MG, 1X/DAY
     Route: 048
     Dates: end: 20090506
  3. ORFIDAL [Concomitant]
     Dosage: 2.5 MG/DAY
     Route: 048
     Dates: end: 20090506
  4. LAMOTRIGINE [Concomitant]
     Dosage: 100 MG, 2X/DAY
     Route: 048
     Dates: start: 20090323
  5. OMEPRAZOLE [Concomitant]
     Dosage: 20 MG, 1X/DAY
     Route: 048
     Dates: start: 20090429
  6. GALENIC /HYDROCHLOROTHIAZIDE/VALSARTAN/ [Concomitant]
     Dosage: 160/12.5 MG, 2X/DAY
     Route: 048
     Dates: start: 20090415
  7. CYMBALTA [Concomitant]
     Dosage: 60 MG, 2X/DAY
     Route: 048
  8. DEPRAX [Concomitant]
     Dosage: 100 MG, 1X/DAY
     Route: 048
     Dates: start: 20090312
  9. METFORMIN HCL [Concomitant]
     Dosage: 850 MG, 3X/DAY
     Route: 048
     Dates: end: 20090508
  10. EMCONCOR [Concomitant]
     Route: 048
     Dates: start: 20090401
  11. MIXTARD NOVOLET [Concomitant]
     Indication: DIABETES MELLITUS
     Route: 058
  12. SUTRIL [Concomitant]
     Dosage: 10 MG, 1X/DAY
     Route: 048
  13. SIMVASTATIN [Concomitant]
     Dosage: 20 MG, 1X/DAY
     Route: 048

REACTIONS (2)
  - ATRIAL FIBRILLATION [None]
  - CONFUSIONAL STATE [None]
